FAERS Safety Report 24784488 (Version 4)
Quarter: 2025Q4

REPORT INFORMATION
  Report Type: Report from Study
  Country: EU (occurrence: EU)
  Receive Date: 20241227
  Receipt Date: 20251001
  Transmission Date: 20260119
  Serious: Yes (Other)
  Sender: EISAI
  Company Number: EU-Eisai-EC-2024-181458

PATIENT
  Age: 58 Year
  Sex: Female
  Weight: 79.5 kg

DRUGS (13)
  1. LENVATINIB [Suspect]
     Active Substance: LENVATINIB
     Indication: Non-small cell lung cancer
     Route: 048
     Dates: start: 20221124, end: 20221214
  2. LENVATINIB [Suspect]
     Active Substance: LENVATINIB
     Route: 048
     Dates: start: 20221215, end: 20230104
  3. PEMBROLIZUMAB [Suspect]
     Active Substance: PEMBROLIZUMAB
     Indication: Non-small cell lung cancer
     Dosage: FREQUENCY- OTO (ONE TIME ONLY)
     Route: 041
     Dates: start: 20221124, end: 20221124
  4. PEMBROLIZUMAB [Suspect]
     Active Substance: PEMBROLIZUMAB
     Dosage: FREQUENCY- OTO (ONE TIME ONLY)
     Route: 041
     Dates: start: 20221215, end: 20221215
  5. CISPLATIN [Suspect]
     Active Substance: CISPLATIN
     Indication: Non-small cell lung cancer
     Dosage: FREQUENCY UNKNOWN
     Route: 042
     Dates: start: 20230214, end: 20230214
  6. PEMETREXED [Suspect]
     Active Substance: PEMETREXED
     Indication: Non-small cell lung cancer
     Dosage: FREQUENCY UNKNOWN
     Route: 042
     Dates: start: 20230214, end: 20230214
  7. PEMETREXED [Suspect]
     Active Substance: PEMETREXED
     Dosage: FREQUENCY UNKNOWN
     Route: 042
     Dates: start: 20230308, end: 20230819
  8. CARBOPLATIN [Suspect]
     Active Substance: CARBOPLATIN
     Indication: Non-small cell lung cancer
     Dosage: FREQUENCY UNKNOWN
     Route: 042
     Dates: start: 20230308, end: 20230819
  9. EUTHYROX [Concomitant]
     Active Substance: LEVOTHYROXINE SODIUM
     Indication: Hypothyroidism
  10. LISINOPRIL [Concomitant]
     Active Substance: LISINOPRIL
     Indication: Hypertension
     Route: 048
     Dates: start: 20230328, end: 20230717
  11. ROSUVASTATIN [Concomitant]
     Active Substance: ROSUVASTATIN
     Indication: Prophylaxis
     Route: 048
     Dates: start: 20221124
  12. FOLIC ACID [Concomitant]
     Active Substance: FOLIC ACID
     Indication: Prophylaxis
     Route: 048
     Dates: start: 20230207, end: 20230626
  13. OLEOVIT [Concomitant]
     Indication: Vitamin supplementation
     Route: 048
     Dates: start: 20221114

REACTIONS (5)
  - Neutropenia [Recovered/Resolved]
  - Anaemia [Recovered/Resolved]
  - Thrombocytopenia [Recovered/Resolved]
  - Pulmonary embolism [Recovered/Resolved]
  - Accidental overdose [Unknown]

NARRATIVE: CASE EVENT DATE: 20230106
